FAERS Safety Report 9317997 (Version 2)
Quarter: 2013Q2

REPORT INFORMATION
  Report Type: Spontaneous
  Country: GB (occurrence: None)
  Receive Date: 20130524
  Receipt Date: 20130530
  Transmission Date: 20140414
  Serious: Yes (Hospitalization)
  Sender: FDA-Public Use
  Company Number: 2013AP005387

PATIENT
  Age: 34 Year
  Sex: Female

DRUGS (2)
  1. CITALOPRAM [Suspect]
  2. AMITRIPTYLINE [Suspect]

REACTIONS (14)
  - Overdose [None]
  - Unresponsive to stimuli [None]
  - Grand mal convulsion [None]
  - Cardiac arrest [None]
  - Ventricular tachycardia [None]
  - Metabolic acidosis [None]
  - Bradycardia [None]
  - Overdose [None]
  - Toxicity to various agents [None]
  - Blood pressure decreased [None]
  - Electrocardiogram QT prolonged [None]
  - Electrocardiogram QRS complex prolonged [None]
  - Ventricular extrasystoles [None]
  - No therapeutic response [None]
